FAERS Safety Report 6089321-7 (Version None)
Quarter: 2009Q1

REPORT INFORMATION
  Report Type: 
  Country: None (occurrence: None)
  Receive Date: 20090224
  Receipt Date: 20090212
  Transmission Date: 20090719
  Serious: Yes (Other)
  Sender: FDA-Public Use
  Company Number: US-JNJCH-2008055434

PATIENT
  Age: 58 Year
  Sex: Female

DRUGS (1)
  1. LISTERINE WHITENING VIBRANT WHITE PRE-BRUSH RINSE [Suspect]
     Indication: DENTAL CARE
     Dosage: TEXT:NO DRUG GIVEN
     Route: 048
     Dates: start: 20081121, end: 20081123

REACTIONS (1)
  - CAUSTIC INJURY [None]
